FAERS Safety Report 23465281 (Version 1)
Quarter: 2024Q1

REPORT INFORMATION
  Report Type: Report from Study
  Country: US (occurrence: US)
  Receive Date: 20240201
  Receipt Date: 20240201
  Transmission Date: 20240409
  Serious: Yes (Other)
  Sender: FDA-Public Use
  Company Number: US-ABBVIE-5610436

PATIENT
  Age: 66 Year
  Sex: Male

DRUGS (1)
  1. IMBRUVICA [Suspect]
     Active Substance: IBRUTINIB
     Indication: Chronic lymphocytic leukaemia
     Route: 048
     Dates: start: 20211031

REACTIONS (3)
  - Coronary artery bypass [Recovered/Resolved]
  - Pulmonary oedema [Unknown]
  - Peripheral nerve injury [Unknown]

NARRATIVE: CASE EVENT DATE: 20231027
